FAERS Safety Report 10083762 (Version 3)
Quarter: 2014Q2

REPORT INFORMATION
  Report Type: Spontaneous
  Country: JP (occurrence: JP)
  Receive Date: 20140417
  Receipt Date: 20140428
  Transmission Date: 20141212
  Serious: Yes (Other)
  Sender: FDA-Public Use
  Company Number: PHHY2014JP044763

PATIENT
  Age: 65 Year
  Sex: Male

DRUGS (3)
  1. GLIVEC [Suspect]
     Indication: CHRONIC MYELOID LEUKAEMIA
     Dosage: 400 MG, QD
     Route: 048
     Dates: start: 20100903
  2. SELBEX [Concomitant]
     Indication: ABDOMINAL DISCOMFORT
     Dosage: 150 MG, UNK
     Route: 048
     Dates: start: 20100903
  3. KOLANTYL [Concomitant]
     Indication: ABDOMINAL DISCOMFORT
     Dosage: 3 G, UNK
     Route: 048
     Dates: start: 20100903

REACTIONS (1)
  - Hypothyroidism [Not Recovered/Not Resolved]
